FAERS Safety Report 4521691-0 (Version None)
Quarter: 2004Q4

REPORT INFORMATION
  Report Type: 
  Country: None (occurrence: None)
  Receive Date: 20041209
  Receipt Date: 20041007
  Transmission Date: 20050328
  Serious: Yes (Death)
  Sender: FDA-Public Use
  Company Number: 200413141JP

PATIENT
  Age: 80 Year
  Sex: Male
  Weight: 60 kg

DRUGS (2)
  1. TAXOTERE [Suspect]
     Indication: LUNG NEOPLASM MALIGNANT
     Route: 041
     Dates: start: 20040223, end: 20040930
  2. RANDA [Concomitant]
     Indication: LUNG NEOPLASM MALIGNANT
     Route: 041
     Dates: start: 20040223, end: 20040323

REACTIONS (10)
  - CARDIAC ARREST [None]
  - CYANOSIS [None]
  - ENTEROCOLITIS [None]
  - GASTROINTESTINAL NECROSIS [None]
  - ILEUS PARALYTIC [None]
  - INFLAMMATION [None]
  - INTERSTITIAL LUNG DISEASE [None]
  - LOSS OF CONSCIOUSNESS [None]
  - TACHYPNOEA [None]
  - WHITE BLOOD CELL COUNT INCREASED [None]
